FAERS Safety Report 24030460 (Version 1)
Quarter: 2024Q2

REPORT INFORMATION
  Report Type: Spontaneous
  Country: US (occurrence: US)
  Receive Date: 20240628
  Receipt Date: 20240628
  Transmission Date: 20240716
  Serious: No
  Sender: FDA-Public Use
  Company Number: US-NKFPHARMA-2023MPSPO00131

PATIENT

DRUGS (3)
  1. HEPARIN SODIUM [Suspect]
     Active Substance: HEPARIN SODIUM
     Indication: Catheter placement
     Route: 040
     Dates: start: 20230901
  2. BIVALIRUDIN [Concomitant]
     Active Substance: BIVALIRUDIN
     Indication: Product used for unknown indication
     Route: 065
  3. ALTEPLASE [Concomitant]
     Active Substance: ALTEPLASE
     Indication: Product used for unknown indication
     Route: 065

REACTIONS (1)
  - Drug ineffective [Unknown]
